FAERS Safety Report 9797464 (Version 1)
Quarter: 2014Q1

REPORT INFORMATION
  Report Type: Report from Study
  Country: AR (occurrence: AR)
  Receive Date: 20140106
  Receipt Date: 20140106
  Transmission Date: 20141002
  Serious: Yes (Death)
  Sender: FDA-Public Use
  Company Number: PHHY2013AR153096

PATIENT
  Age: 60 Year
  Sex: Male

DRUGS (2)
  1. DIOVAN [Suspect]
     Indication: HYPERTENSION
     Dosage: 160 MG, DAILY (ONLY ONE OR TWO TABLETS)
     Route: 048
     Dates: start: 201309
  2. DIOVAN [Suspect]
     Indication: CARDIAC DISORDER

REACTIONS (2)
  - Respiratory arrest [Fatal]
  - Wrong technique in drug usage process [Unknown]
